FAERS Safety Report 18268514 (Version 2)
Quarter: 2020Q4

REPORT INFORMATION
  Report Type: Report from Study
  Country: CA (occurrence: CA)
  Receive Date: 20200915
  Receipt Date: 20201009
  Transmission Date: 20210113
  Serious: Yes (Hospitalization, Other)
  Sender: FDA-Public Use
  Company Number: CA-JNJFOC-20200110580

PATIENT
  Age: 68 Year
  Sex: Male

DRUGS (2)
  1. ZYTIGA [Suspect]
     Active Substance: ABIRATERONE ACETATE
     Indication: PROSTATE CANCER METASTATIC
     Route: 048
     Dates: start: 20191201, end: 20191228
  2. ZYTIGA [Suspect]
     Active Substance: ABIRATERONE ACETATE
     Route: 048
     Dates: start: 20200206, end: 2020

REACTIONS (11)
  - Urinary retention [Recovered/Resolved]
  - Ureteral stent insertion [Unknown]
  - Hepatic lesion [Unknown]
  - Hyperkalaemia [Recovering/Resolving]
  - Prostate cancer metastatic [Unknown]
  - Pneumonia [Not Recovered/Not Resolved]
  - Hydronephrosis [Unknown]
  - Splenomegaly [Unknown]
  - Urinary tract obstruction [Not Recovered/Not Resolved]
  - Haemorrhage urinary tract [Recovered/Resolved]
  - Vomiting [Unknown]

NARRATIVE: CASE EVENT DATE: 202007
